FAERS Safety Report 8145875-8 (Version None)
Quarter: 2012Q1

REPORT INFORMATION
  Report Type: 
  Country: None (occurrence: None)
  Receive Date: 20120217
  Receipt Date: 20120214
  Transmission Date: 20120608
  Serious: Yes (Life-Threatening, Hospitalization)
  Sender: FDA-Public Use
  Company Number: DE-BAYER-2012-015600

PATIENT
  Age: 66 Year
  Sex: Male
  Weight: 90 kg

DRUGS (12)
  1. DABIGATRAN [Suspect]
     Indication: ATRIAL FIBRILLATION
     Dosage: 110 MG, BID
     Route: 048
     Dates: start: 20111010, end: 20120122
  2. BISOPROLOL FUMARATE [Concomitant]
     Indication: CORONARY ARTERY DISEASE
     Dosage: 5 MG, QD
     Route: 048
     Dates: start: 20020101, end: 20120122
  3. ASPIRIN [Suspect]
     Indication: PROPHYLAXIS
     Dosage: 100 MG, QD
     Route: 048
     Dates: start: 20020101, end: 20111001
  4. RAMIPRIL [Concomitant]
     Indication: CORONARY ARTERY DISEASE
     Dosage: 10 MG, QD
     Route: 048
     Dates: start: 20020101, end: 20120122
  5. RAMIPRIL [Concomitant]
     Indication: HYPERTENSION
  6. TORSEMIDE [Concomitant]
     Indication: CORONARY ARTERY DISEASE
     Dosage: 5 MG, QD
     Route: 048
     Dates: start: 20020101, end: 20120122
  7. TORSEMIDE [Concomitant]
     Indication: HYPERTENSION
  8. BAYOTENSIN [Concomitant]
     Indication: CORONARY ARTERY DISEASE
     Dosage: 10 MG, BID
     Route: 048
     Dates: start: 20020101, end: 20120122
  9. SIMVASTATIN [Concomitant]
     Indication: HYPERLIPIDAEMIA
     Dosage: 40 MG, QD
     Route: 048
     Dates: start: 20020101, end: 20120122
  10. BAYOTENSIN [Concomitant]
     Indication: HYPERTENSION
  11. ASPIRIN [Suspect]
     Indication: PROPHYLAXIS
     Dosage: 100 MG, QD
     Route: 048
     Dates: start: 20111001, end: 20120122
  12. BISOPROLOL FUMARATE [Concomitant]
     Indication: HYPERTENSION

REACTIONS (4)
  - MULTI-ORGAN FAILURE [None]
  - SHOCK HAEMORRHAGIC [None]
  - HAEMOTHORAX [None]
  - DISSEMINATED INTRAVASCULAR COAGULATION [None]
